FAERS Safety Report 11190343 (Version 2)
Quarter: 2015Q2

REPORT INFORMATION
  Report Type: Spontaneous
  Country: BR (occurrence: BR)
  Receive Date: 20150615
  Receipt Date: 20150625
  Transmission Date: 20150821
  Serious: Yes (Hospitalization, Other)
  Sender: FDA-Public Use
  Company Number: BR-009507513-1506BRA006192

PATIENT
  Age: 32 Year
  Sex: Female
  Weight: 76 kg

DRUGS (2)
  1. IMPLANON [Suspect]
     Active Substance: ETONOGESTREL
     Indication: CONTRACEPTION
     Dosage: UNK
     Route: 059
     Dates: start: 2012
  2. IMPLANON [Suspect]
     Active Substance: ETONOGESTREL
     Dosage: UNK
     Route: 059
     Dates: start: 201505

REACTIONS (6)
  - Mammoplasty [Recovered/Resolved]
  - Incorrect drug administration duration [Unknown]
  - Implant site haematoma [Not Recovered/Not Resolved]
  - Abdominoplasty [Recovered/Resolved]
  - Device difficult to use [Not Recovered/Not Resolved]
  - Product quality issue [Unknown]

NARRATIVE: CASE EVENT DATE: 201411
